FAERS Safety Report 4861656-2 (Version None)
Quarter: 2005Q4

REPORT INFORMATION
  Report Type: 
  Country: None (occurrence: None)
  Receive Date: 20051130
  Receipt Date: 20041213
  Transmission Date: 20060501
  Serious: Yes (Hospitalization)
  Sender: FDA-Public Use
  Company Number: 200421161BWH

PATIENT
  Age: 70 Year
  Sex: Female
  Weight: 95 kg

DRUGS (10)
  1. CIPRO [Suspect]
     Indication: HIDRADENITIS
  2. CLINDAMYCIN [Suspect]
     Indication: HIDRADENITIS
  3. WARFARIN SODIUM [Concomitant]
  4. VANCOMYCIN [Concomitant]
  5. AZTREONAM [Concomitant]
  6. VITAMIN K [Concomitant]
  7. FRESH FROZEN PLASMA [Concomitant]
  8. METRONIDAZOLE [Concomitant]
  9. DOXYCYCLINE [Concomitant]
  10. PROCRIT [Concomitant]

REACTIONS (2)
  - RENAL FAILURE ACUTE [None]
  - RENAL FAILURE CHRONIC [None]
